FAERS Safety Report 22249023 (Version 1)
Quarter: 2023Q2

REPORT INFORMATION
  Report Type: Report from Study
  Country: NL (occurrence: NL)
  Receive Date: 20230425
  Receipt Date: 20230425
  Transmission Date: 20230722
  Serious: Yes (Other)
  Sender: FDA-Public Use
  Company Number: NL-MYLANLABS-2023M1042414

PATIENT
  Age: 14 Month
  Sex: Female

DRUGS (8)
  1. ISOTRETINOIN [Suspect]
     Active Substance: ISOTRETINOIN
     Indication: Ganglioneuroblastoma
     Dosage: UNK
     Route: 065
  2. VINCRISTINE [Suspect]
     Active Substance: VINCRISTINE
     Indication: Ganglioneuroblastoma
     Dosage: UNK UNK, CYCLE (TWO CYCLES; FIRST LINE THERAPY)
     Route: 065
  3. VINCRISTINE [Suspect]
     Active Substance: VINCRISTINE
     Dosage: UNK UNK, CYCLE (TWO CYCLES; SECOND LINE THERAPY)
     Route: 065
  4. CARBOPLATIN [Suspect]
     Active Substance: CARBOPLATIN
     Indication: Ganglioneuroblastoma
     Dosage: UNK UNK, CYCLE (TWO CYCLES; FIRST LINE THERAPY
     Route: 065
  5. ETOPOSIDE [Suspect]
     Active Substance: ETOPOSIDE
     Indication: Ganglioneuroblastoma
     Dosage: UNK UNK, CYCLE (TWO CYCLES; FIRST LINE THERAPY)
     Route: 065
  6. CYCLOPHOSPHAMIDE [Suspect]
     Active Substance: CYCLOPHOSPHAMIDE
     Indication: Ganglioneuroblastoma
     Dosage: UNK UNK, CYCLE (TWO CYCLES; SECOND LINE THERAPY)
     Route: 065
  7. TENIPOSIDE [Suspect]
     Active Substance: TENIPOSIDE
     Indication: Ganglioneuroblastoma
     Dosage: UNK UNK, CYCLE (TWO CYCLES; SECOND LINE THERAPY)
     Route: 065
  8. IOBENGUANE I-131 [Suspect]
     Active Substance: IOBENGUANE I-131
     Indication: Ganglioneuroblastoma
     Dosage: UNK UNK, CYCLE (TWO CYCLES)
     Route: 065

REACTIONS (2)
  - Drug ineffective [Unknown]
  - Disease progression [Unknown]
